FAERS Safety Report 6002817-9 (Version None)
Quarter: 2008Q4

REPORT INFORMATION
  Report Type: 
  Country: None (occurrence: None)
  Receive Date: 20081215
  Receipt Date: 20071107
  Transmission Date: 20090506
  Serious: No
  Sender: FDA-Public Use
  Company Number: US-AMGEN-KDL251591

PATIENT
  Sex: Male

DRUGS (2)
  1. ENBREL [Suspect]
     Indication: ANKYLOSING SPONDYLITIS
     Route: 058
     Dates: start: 20071106
  2. METHOTREXATE [Concomitant]
     Route: 058
     Dates: start: 20070901

REACTIONS (3)
  - INFLUENZA [None]
  - MALAISE [None]
  - PAIN [None]
